FAERS Safety Report 16975595 (Version 1)
Quarter: 2019Q4

REPORT INFORMATION
  Report Type: Spontaneous
  Country: JP (occurrence: JP)
  Receive Date: 20191030
  Receipt Date: 20191030
  Transmission Date: 20200122
  Serious: Yes (Other)
  Sender: FDA-Public Use
  Company Number: JP-BAYER-2019-191263

PATIENT
  Age: 7 Decade
  Sex: Female

DRUGS (3)
  1. NEXAVAR [Suspect]
     Active Substance: SORAFENIB
     Indication: THYROID CANCER
     Dosage: 800 MG
     Route: 048
     Dates: start: 201501, end: 201507
  2. OLMESARTAN [Concomitant]
     Active Substance: OLMESARTAN
  3. NEXAVAR [Suspect]
     Active Substance: SORAFENIB
     Indication: THYROID CANCER
     Dosage: 600 MG
     Dates: start: 201507

REACTIONS (4)
  - Palmar-plantar erythrodysaesthesia syndrome [None]
  - Metastases to lymph nodes [None]
  - Decreased appetite [None]
  - Abdominal pain [None]

NARRATIVE: CASE EVENT DATE: 201501
